FAERS Safety Report 14983110 (Version 5)
Quarter: 2018Q3

REPORT INFORMATION
  Report Type: Spontaneous
  Country: US (occurrence: US)
  Receive Date: 20180607
  Receipt Date: 20180904
  Transmission Date: 20181010
  Serious: No
  Sender: FDA-Public Use
  Company Number: US-PFIZER INC-2018231789

PATIENT
  Age: 67 Year
  Sex: Female
  Weight: 57 kg

DRUGS (2)
  1. LEVOXYL [Suspect]
     Active Substance: LEVOTHYROXINE SODIUM
     Indication: HYPOTHYROIDISM
     Dosage: 75 UG, DAILY (EVERYDAY)
     Route: 048
     Dates: start: 20180601
  2. ADVIL [Concomitant]
     Active Substance: IBUPROFEN
     Dosage: UNK (EVERY ONCE IN A WHILE)

REACTIONS (3)
  - Flatulence [Recovered/Resolved]
  - Abdominal pain upper [Recovered/Resolved]
  - Feeling hot [Not Recovered/Not Resolved]

NARRATIVE: CASE EVENT DATE: 20180604
